FAERS Safety Report 17683073 (Version 6)
Quarter: 2020Q2

REPORT INFORMATION
  Report Type: Spontaneous
  Country: US (occurrence: US)
  Receive Date: 20200420
  Receipt Date: 20200615
  Transmission Date: 20200714
  Serious: Yes (Other)
  Sender: FDA-Public Use
  Company Number: US-GLAXOSMITHKLINE-US2020AMR066613

PATIENT
  Sex: Female

DRUGS (4)
  1. ZEJULA [Suspect]
     Active Substance: NIRAPARIB
     Dosage: 200 MG, QD
  2. ZEJULA [Suspect]
     Active Substance: NIRAPARIB
     Dosage: 300 MG, DAILY
  3. ZEJULA [Suspect]
     Active Substance: NIRAPARIB
     Indication: OVARIAN CANCER
     Dosage: 100 MG, QD
     Dates: start: 20200401
  4. ZEJULA [Suspect]
     Active Substance: NIRAPARIB
     Dosage: 300 MG, DAILY
     Dates: start: 20200325

REACTIONS (14)
  - Weight decreased [Unknown]
  - Eructation [Unknown]
  - Crying [Unknown]
  - Eating disorder [Unknown]
  - Feeling abnormal [Unknown]
  - Incorrect dose administered [Unknown]
  - Fatigue [Unknown]
  - Condition aggravated [Unknown]
  - Underdose [Unknown]
  - Suicidal behaviour [Unknown]
  - Paraesthesia [Unknown]
  - Emotional disorder [Unknown]
  - Platelet count decreased [Recovering/Resolving]
  - Dizziness [Recovering/Resolving]
